FAERS Safety Report 13164927 (Version 6)
Quarter: 2017Q1

REPORT INFORMATION
  Report Type: Spontaneous
  Country: US (occurrence: US)
  Receive Date: 20170130
  Receipt Date: 20170317
  Transmission Date: 20170428
  Serious: Yes (Life-Threatening, Hospitalization, Other)
  Sender: FDA-Public Use
  Company Number: US-ACTELION-A-NJ2017-148971

PATIENT
  Age: 80 Year
  Sex: Male

DRUGS (2)
  1. OPSUMIT [Suspect]
     Active Substance: MACITENTAN
     Indication: PULMONARY ARTERIAL HYPERTENSION
     Dosage: 10 MG, UNK
     Route: 048
     Dates: start: 20150526
  2. ADCIRCA [Concomitant]
     Active Substance: TADALAFIL

REACTIONS (12)
  - Blood creatine phosphokinase MB increased [Recovered/Resolved]
  - Troponin I increased [Recovered/Resolved]
  - Dysuria [Unknown]
  - Chest pain [Recovered/Resolved]
  - Papilloma [Unknown]
  - Transfusion [Recovered/Resolved]
  - Stent placement [Recovered/Resolved]
  - Acute myocardial infarction [Recovered/Resolved]
  - Haematuria [Recovered/Resolved]
  - Haemoglobin decreased [Recovered/Resolved]
  - Thrombectomy [Unknown]
  - Anaemia [Recovered/Resolved]

NARRATIVE: CASE EVENT DATE: 20170122
